FAERS Safety Report 13039982 (Version 1)
Quarter: 2016Q4

REPORT INFORMATION
  Report Type: Spontaneous
  Country: US (occurrence: US)
  Receive Date: 20161219
  Receipt Date: 20161219
  Transmission Date: 20170207
  Serious: No
  Sender: FDA-Public Use
  Company Number: US-GE HEALTHCARE MEDICAL DIAGNOSTICS-M123-PR-1611L-0017

PATIENT
  Age: 52 Year
  Sex: Female

DRUGS (2)
  1. ADREVIEW [Suspect]
     Active Substance: IOBENGUANE I-123
     Indication: PARAGANGLION NEOPLASM MALIGNANT
     Dosage: DOSE NOT REPORTED
     Route: 042
  2. ADREVIEW [Suspect]
     Active Substance: IOBENGUANE I-123
     Indication: DIAGNOSTIC PROCEDURE

REACTIONS (2)
  - No adverse event [Recovered/Resolved]
  - False negative investigation result [Recovered/Resolved]
